FAERS Safety Report 22041644 (Version 3)
Quarter: 2023Q1

REPORT INFORMATION
  Report Type: Spontaneous
  Country: IT (occurrence: IT)
  Receive Date: 20230227
  Receipt Date: 20230309
  Transmission Date: 20230417
  Serious: Yes (Other)
  Sender: FDA-Public Use
  Company Number: IT-MYLANLABS-2023M1020425

PATIENT
  Sex: Female

DRUGS (2)
  1. XANAX [Suspect]
     Active Substance: ALPRAZOLAM
     Indication: Anxiety
     Dosage: UNK
     Route: 065
  2. XANAX [Suspect]
     Active Substance: ALPRAZOLAM
     Indication: Panic attack

REACTIONS (10)
  - Drug dependence [Unknown]
  - Derealisation [Unknown]
  - Negative thoughts [Unknown]
  - Impaired reasoning [Unknown]
  - Social anxiety disorder [Unknown]
  - Malaise [Unknown]
  - Panic attack [Unknown]
  - Depression [Unknown]
  - Nausea [Unknown]
  - Anxiety [Unknown]
